FAERS Safety Report 8106350-X (Version None)
Quarter: 2012Q1

REPORT INFORMATION
  Report Type: 
  Country: None (occurrence: None)
  Receive Date: 20120202
  Receipt Date: 20120126
  Transmission Date: 20120608
  Serious: Yes (Other)
  Sender: FDA-Public Use
  Company Number: CA-CELGENEUS-028-50794-12012892

PATIENT

DRUGS (1)
  1. VIDAZA [Suspect]
     Route: 065

REACTIONS (2)
  - LIVER DISORDER [None]
  - NEUTROPENIA [None]
